FAERS Safety Report 23211569 (Version 2)
Quarter: 2024Q2

REPORT INFORMATION
  Report Type: Report from Study
  Country: US (occurrence: US)
  Receive Date: 20231121
  Receipt Date: 20240418
  Transmission Date: 20240716
  Serious: Yes (Other)
  Sender: FDA-Public Use
  Company Number: US-ASCENDIS PHARMA-2023US003800

PATIENT

DRUGS (3)
  1. LONAPEGSOMATROPIN [Suspect]
     Active Substance: LONAPEGSOMATROPIN
     Indication: Hypopituitarism
     Dosage: 7.6 MILLIGRAM, WEEKLY
     Route: 058
     Dates: start: 20230125, end: 20230504
  2. XOPENEX HFA [Concomitant]
     Active Substance: LEVALBUTEROL TARTRATE
     Indication: Product used for unknown indication
     Dosage: 45 MICROGRAM HFA AER AD
  3. CABERGOLINE [Concomitant]
     Active Substance: CABERGOLINE
     Indication: Hyperprolactinaemia
     Dosage: 0.25 MILLIGRAM, TWO TIMES PER WEEK
     Dates: end: 202308

REACTIONS (3)
  - Pituitary cyst [Unknown]
  - Headache [Recovering/Resolving]
  - Injection site pain [Unknown]

NARRATIVE: CASE EVENT DATE: 20230504
